FAERS Safety Report 20442179 (Version 3)
Quarter: 2022Q3

REPORT INFORMATION
  Report Type: Spontaneous
  Country: CO (occurrence: CO)
  Receive Date: 20220208
  Receipt Date: 20220713
  Transmission Date: 20221027
  Serious: Yes (Other)
  Sender: FDA-Public Use
  Company Number: CO-GLAXOSMITHKLINE-CO2022AMR010044

PATIENT

DRUGS (2)
  1. NUCALA [Suspect]
     Active Substance: MEPOLIZUMAB
     Indication: Asthma
     Dosage: 100 MG, Z (EVERY 28 DAYS)
     Route: 058
     Dates: end: 20211221
  2. JANSSEN COVID-19 VACCINE [Suspect]
     Active Substance: AD26.COV2.S
     Indication: Prophylaxis
     Dosage: UNK
     Dates: start: 20220115

REACTIONS (7)
  - Asthmatic crisis [Recovered/Resolved]
  - Headache [Unknown]
  - Odynophagia [Unknown]
  - Myalgia [Unknown]
  - Arthralgia [Unknown]
  - Nasal congestion [Unknown]
  - Product use in unapproved indication [Unknown]

NARRATIVE: CASE EVENT DATE: 20220115
